FAERS Safety Report 9949193 (Version 1)
Quarter: 2014Q1

REPORT INFORMATION
  Report Type: Spontaneous
  Country: JP (occurrence: JP)
  Receive Date: 20140304
  Receipt Date: 20140304
  Transmission Date: 20141002
  Serious: Yes (Other)
  Sender: FDA-Public Use
  Company Number: JP-009507513-1402JPN012074

PATIENT
  Age: 40 Year
  Sex: Female

DRUGS (3)
  1. GASTER [Suspect]
     Indication: SUICIDE ATTEMPT
     Dosage: 400-600 MG DAILY (20-30 FAMOTIDINE 20 MG TABLETS)
     Route: 048
     Dates: start: 20140220, end: 20140220
  2. ANALGESIC (UNSPECIFIED) [Concomitant]
     Indication: SUICIDE ATTEMPT
     Dosage: UNK
     Route: 048
     Dates: start: 20140220, end: 20140220
  3. NONSTEROIDAL ANTI-INFLAMMATORY DRUG (UNSPECIFIED) [Concomitant]
     Indication: SUICIDE ATTEMPT
     Dosage: UNK
     Route: 048
     Dates: start: 20140220, end: 20140220

REACTIONS (3)
  - Suicide attempt [Unknown]
  - Loss of consciousness [Unknown]
  - Intentional overdose [Unknown]
